FAERS Safety Report 21742754 (Version 2)
Quarter: 2022Q4

REPORT INFORMATION
  Report Type: Report from Study
  Country: BR (occurrence: BR)
  Receive Date: 20221217
  Receipt Date: 20221227
  Transmission Date: 20230112
  Serious: Yes (Disabling)
  Sender: FDA-Public Use
  Company Number: BR-CELLTRION INC.-2022BR021131

PATIENT

DRUGS (3)
  1. INFLIXIMAB [Suspect]
     Active Substance: INFLIXIMAB
     Indication: Psoriatic arthropathy
     Dosage: 5 AMPOULES EVERY 8 WEEKS
     Route: 042
     Dates: start: 202206
  2. INFLIXIMAB [Suspect]
     Active Substance: INFLIXIMAB
     Dosage: 5 AMPOULES EVERY 8 WEEKS
     Route: 042
     Dates: start: 202210
  3. FINASTERIDE [Concomitant]
     Active Substance: FINASTERIDE
     Indication: Alopecia
     Dosage: 1 PILL A DAY SINCE 8 YEARS AGO
     Route: 048

REACTIONS (11)
  - Impaired work ability [Unknown]
  - Neck pain [Unknown]
  - Arthralgia [Unknown]
  - Arthralgia [Unknown]
  - Pain in extremity [Unknown]
  - Muscular weakness [Unknown]
  - Pain [Unknown]
  - Pain [Unknown]
  - Illness [Unknown]
  - Vomiting [Unknown]
  - Drug ineffective [Unknown]
